FAERS Safety Report 15853684 (Version 1)
Quarter: 2019Q1

REPORT INFORMATION
  Report Type: Spontaneous
  Country: US (occurrence: US)
  Receive Date: 20190121
  Receipt Date: 20190121
  Transmission Date: 20190417
  Serious: Yes (Hospitalization)
  Sender: FDA-Public Use
  Company Number: None

PATIENT
  Sex: Female

DRUGS (6)
  1. ALPRAZOLAM, BREO ELLIPTA [Concomitant]
  2. DILTIAZEM, ELIQUIS [Concomitant]
  3. HYDROCHLOROT, IPRATROPIUM [Concomitant]
  4. XOLAIR [Suspect]
     Active Substance: OMALIZUMAB
     Indication: ASTHMA
     Dosage: ?          OTHER FREQUENCY:Q 4 WEEKS;?
     Route: 058
     Dates: start: 20180822
  5. LEVAQUIN, MUCINEX [Concomitant]
  6. PREDNISONE, TRICOR [Concomitant]

REACTIONS (1)
  - Cerebrovascular accident [None]
